FAERS Safety Report 7383649-6 (Version None)
Quarter: 2011Q1

REPORT INFORMATION
  Report Type: 
  Country: None (occurrence: None)
  Receive Date: 20110330
  Receipt Date: 20101021
  Transmission Date: 20110831
  Serious: Yes (Hospitalization)
  Sender: FDA-Public Use
  Company Number: US-BAYER-201010022NA

PATIENT
  Sex: Female
  Weight: 102.4 kg

DRUGS (8)
  1. YASMIN [Suspect]
     Indication: PREMENSTRUAL SYNDROME
     Route: 048
     Dates: start: 20020501, end: 20020801
  2. YAZ [Suspect]
  3. YASMIN [Suspect]
  4. SARAFEM [Concomitant]
  5. NABUMETONE [Concomitant]
  6. YAZ [Suspect]
     Indication: PRODUCT USED FOR UNKNOWN INDICATION
     Route: 048
  7. NSAID'S [Concomitant]
  8. ALPRAZOLAM [Concomitant]

REACTIONS (1)
  - PULMONARY EMBOLISM [None]
